FAERS Safety Report 20763183 (Version 1)
Quarter: 2022Q2

REPORT INFORMATION
  Report Type: Spontaneous
  Country: US (occurrence: US)
  Receive Date: 20220428
  Receipt Date: 20220428
  Transmission Date: 20220721
  Serious: Yes (Other)
  Sender: FDA-Public Use
  Company Number: US-PFIZER INC-202200598772

PATIENT
  Age: 74 Year
  Weight: 78.02 kg

DRUGS (4)
  1. PAXLOVID [Suspect]
     Active Substance: NIRMATRELVIR\RITONAVIR
     Indication: COVID-19 treatment
     Dosage: DOSE STRENGTH WAS 100MG RITONAVIR AND TWO PILLS OF 150MG NIRMATRELVIR (PF-07321332)
     Route: 048
     Dates: start: 20220405, end: 20220410
  2. LIPITOR [Suspect]
     Active Substance: ATORVASTATIN CALCIUM
     Dosage: 10 MG, 1X/DAY
  3. AMLODIPINE BESYLATE [Suspect]
     Active Substance: AMLODIPINE BESYLATE
     Indication: Hypertension
     Dosage: 10 MG, 1X/DAY
  4. IRBESARTAN [Concomitant]
     Active Substance: IRBESARTAN
     Indication: Cardiac disorder
     Dosage: UNK

REACTIONS (5)
  - Hypertension [Unknown]
  - Heart rate increased [Unknown]
  - Pruritus [Not Recovered/Not Resolved]
  - Burning sensation [Unknown]
  - Headache [Unknown]

NARRATIVE: CASE EVENT DATE: 20220401
